FAERS Safety Report 5934605-3 (Version None)
Quarter: 2008Q4

REPORT INFORMATION
  Report Type: 
  Country: None (occurrence: None)
  Receive Date: 20081029
  Receipt Date: 20081017
  Transmission Date: 20090506
  Serious: Yes (Hospitalization)
  Sender: FDA-Public Use
  Company Number: FR-PFIZER INC-2008088165

PATIENT
  Sex: Female

DRUGS (3)
  1. ZOLOFT [Suspect]
     Dosage: TEXT:TDD:4 DOSAGE FORMS
     Route: 048
     Dates: start: 20070801
  2. HEPTAMINOL HYDROCHLORIDE [Concomitant]
     Route: 048
  3. LEXOMIL [Concomitant]
     Route: 048

REACTIONS (3)
  - CEREBRAL HAEMORRHAGE [None]
  - FALL [None]
  - SEROTONIN SYNDROME [None]
